FAERS Safety Report 22256123 (Version 12)
Quarter: 2024Q2

REPORT INFORMATION
  Report Type: Report from Study
  Country: US (occurrence: US)
  Receive Date: 20230426
  Receipt Date: 20240426
  Transmission Date: 20240715
  Serious: Yes (Hospitalization, Other)
  Sender: FDA-Public Use
  Company Number: US-ARGENX-2022-ARGX-US000575

PATIENT

DRUGS (9)
  1. VYVGART [Suspect]
     Active Substance: EFGARTIGIMOD ALFA-FCAB
     Indication: Myasthenia gravis
     Dosage: 800 MG, 1/WEEK, FOR 4 WEEKS
     Route: 042
     Dates: start: 20220413
  2. VYVGART [Suspect]
     Active Substance: EFGARTIGIMOD ALFA-FCAB
     Dosage: 750 MG
     Route: 042
     Dates: start: 20220413
  3. ALDACTONE [Suspect]
     Active Substance: SPIRONOLACTONE
     Indication: Product used for unknown indication
     Route: 065
  4. EFFEXOR [Suspect]
     Active Substance: VENLAFAXINE HYDROCHLORIDE
     Indication: Product used for unknown indication
     Route: 065
  5. PREDNISONE [Concomitant]
     Active Substance: PREDNISONE
     Indication: Product used for unknown indication
     Dosage: UNK
     Route: 065
  6. MELATONIN [Concomitant]
     Active Substance: MELATONIN
     Indication: Product used for unknown indication
     Dosage: UNK
     Route: 065
  7. ELIQUIS [Concomitant]
     Active Substance: APIXABAN
     Indication: Product used for unknown indication
     Dosage: UNK
     Route: 065
  8. NEURONTIN [Concomitant]
     Active Substance: GABAPENTIN
     Indication: Product used for unknown indication
     Dosage: UNK
     Route: 065
  9. LYRICA [Concomitant]
     Active Substance: PREGABALIN
     Indication: Product used for unknown indication
     Dosage: UNK
     Route: 065

REACTIONS (41)
  - Urinary tract infection [Not Recovered/Not Resolved]
  - Symptom recurrence [Unknown]
  - Monoplegia [Unknown]
  - Herpes zoster [Recovered/Resolved]
  - COVID-19 [Recovered/Resolved]
  - Blood potassium increased [Recovering/Resolving]
  - Diarrhoea [Unknown]
  - Nausea [Recovering/Resolving]
  - Fatigue [Unknown]
  - Fungal infection [Unknown]
  - Hypoaesthesia oral [Unknown]
  - Vomiting [Unknown]
  - Headache [Recovered/Resolved]
  - Urinary tract infection [Unknown]
  - Loss of therapeutic response [Unknown]
  - Pain [Unknown]
  - Pancreatic cyst [Unknown]
  - Dysarthria [Unknown]
  - Arthralgia [Unknown]
  - Dysphagia [Unknown]
  - Muscular weakness [Not Recovered/Not Resolved]
  - Neuropathy peripheral [Unknown]
  - Pneumonia [Unknown]
  - Rash [Recovering/Resolving]
  - Poor quality sleep [Unknown]
  - Malaise [Unknown]
  - Eye pain [Unknown]
  - Dysphonia [Unknown]
  - Headache [Unknown]
  - Fatigue [Unknown]
  - Dysarthria [Unknown]
  - Urinary tract infection [Unknown]
  - Herpes zoster [Unknown]
  - Choking [Unknown]
  - Dysstasia [Unknown]
  - Walking aid user [Unknown]
  - Diplopia [Unknown]
  - Fatigue [Unknown]
  - Anxiety [Unknown]
  - Herpes zoster [Unknown]
  - Peripheral swelling [Unknown]

NARRATIVE: CASE EVENT DATE: 20220426
